FAERS Safety Report 25418168 (Version 1)
Quarter: 2025Q2

REPORT INFORMATION
  Report Type: Spontaneous
  Country: MX (occurrence: MX)
  Receive Date: 20250610
  Receipt Date: 20250610
  Transmission Date: 20250717
  Serious: Yes (Death, Other)
  Sender: SANDOZ
  Company Number: MX-002147023-NVSC2025MX091890

PATIENT
  Age: 83 Year
  Sex: Female

DRUGS (1)
  1. EXELON [Suspect]
     Active Substance: RIVASTIGMINE TARTRATE
     Indication: Product used for unknown indication
     Dosage: 1 DOSAGE FORM, QD (PARCHE 15 PATCH,  EXTENDED RELEASE)
     Route: 062

REACTIONS (1)
  - Death [Fatal]

NARRATIVE: CASE EVENT DATE: 20250517
